FAERS Safety Report 7564878-5 (Version None)
Quarter: 2011Q2

REPORT INFORMATION
  Report Type: 
  Country: None (occurrence: None)
  Receive Date: 20110622
  Receipt Date: 20110125
  Transmission Date: 20111010
  Serious: No
  Sender: FDA-Public Use
  Company Number: US-MYLANLABS-2011S1001725

PATIENT
  Age: 19 Year
  Sex: Female

DRUGS (1)
  1. CLOZAPINE [Suspect]
     Indication: SCHIZOPHRENIA
     Route: 048
     Dates: start: 20060101

REACTIONS (7)
  - LOSS OF CONSCIOUSNESS [None]
  - DRUG INEFFECTIVE [None]
  - HALLUCINATION, VISUAL [None]
  - DIZZINESS [None]
  - MUSCULOSKELETAL STIFFNESS [None]
  - HALLUCINATION, AUDITORY [None]
  - JOINT STIFFNESS [None]
